FAERS Safety Report 8658606 (Version 1)
Quarter: 2020Q3

REPORT INFORMATION
  Report Type: Report from Study
  Country: US (occurrence: US)
  Receive Date: 20120710
  Receipt Date: 20120710
  Transmission Date: 20201105
  Serious: Yes (Hospitalization)
  Sender: FDA-Public Use
  Company Number: US-CELGENEUS-163-21880-12070092

PATIENT
  Age: 67 Year
  Sex: Male
  Weight: 76.8 kg

DRUGS (2)
  1. CEDIRANIB. [Suspect]
     Active Substance: CEDIRANIB
     Dosage: 30 MILLIGRAM
     Route: 048
     Dates: start: 20110517, end: 20110527
  2. REVLIMID [Suspect]
     Active Substance: LENALIDOMIDE
     Dosage: 15 MILLIGRAM
     Route: 048
     Dates: start: 20110517, end: 20110527

REACTIONS (2)
  - Seizure [Recovered/Resolved]
  - Aspiration [Recovered/Resolved]

NARRATIVE: CASE EVENT DATE: 20110527
